FAERS Safety Report 8961606 (Version 2)
Quarter: 2013Q1

REPORT INFORMATION
  Report Type: Report from Study
  Country: CA (occurrence: CA)
  Receive Date: 20121211
  Receipt Date: 20130205
  Transmission Date: 20140127
  Serious: Yes (Hospitalization)
  Sender: FDA-Public Use
  Company Number: CA-UCBSA-072600

PATIENT
  Age: 81 Year
  Sex: Female

DRUGS (14)
  1. CIMZIA [Suspect]
     Indication: RHEUMATOID ARTHRITIS
     Dosage: 3 DOSES RECEIVED
     Route: 058
     Dates: start: 20120911, end: 2012
  2. FOLIC ACID [Concomitant]
     Indication: SUPPLEMENTATION THERAPY
     Route: 048
     Dates: start: 1992
  3. METOPROLOL [Concomitant]
     Indication: HYPERTENSION
     Route: 048
     Dates: start: 1982
  4. PREDNISONE [Concomitant]
     Indication: RHEUMATOID ARTHRITIS
     Route: 048
     Dates: start: 1992
  5. NOVOGESIC [Concomitant]
     Indication: PAIN
     Route: 048
     Dates: start: 2007
  6. DOCUSATE [Concomitant]
     Indication: PROPHYLAXIS
     Route: 048
     Dates: start: 2007
  7. DILAUDID [Concomitant]
     Indication: PAIN
     Route: 048
     Dates: start: 2009
  8. REXATROL [Concomitant]
     Indication: OSTEOPOROSIS
     Route: 048
     Dates: start: 2008
  9. LASIX [Concomitant]
     Indication: CARDIAC FAILURE CONGESTIVE
     Route: 048
     Dates: start: 1997
  10. LIPITOR [Concomitant]
     Indication: HYPERLIPIDAEMIA
     Route: 048
     Dates: start: 1982
  11. PLAQUENIL [Concomitant]
     Indication: RHEUMATOID ARTHRITIS
     Route: 048
     Dates: start: 2007
  12. CALCIUM/VITAMIN D [Concomitant]
     Indication: SUPPLEMENTATION THERAPY
     Route: 048
     Dates: start: 2007
  13. METHOTREXATE [Concomitant]
     Indication: RHEUMATOID ARTHRITIS
     Route: 058
     Dates: start: 1992
  14. K-DUR [Concomitant]
     Indication: MINERAL SUPPLEMENTATION
     Route: 048
     Dates: start: 1997

REACTIONS (1)
  - Small intestinal obstruction [Recovered/Resolved]
